FAERS Safety Report 6518044-2 (Version None)
Quarter: 2009Q4

REPORT INFORMATION
  Report Type: 
  Country: None (occurrence: None)
  Receive Date: 20091223
  Receipt Date: 20091223
  Transmission Date: 20100525
  Serious: Yes (Hospitalization)
  Sender: FDA-Public Use
  Company Number: None

PATIENT
  Age: 65 Year
  Sex: Male
  Weight: 136.2 kg

DRUGS (1)
  1. PHENAZOPYRIDINE [Suspect]
     Indication: URINARY TRACT INFECTION
     Dosage: 100 MG TID PO
     Route: 048
     Dates: start: 20090210, end: 20091203

REACTIONS (6)
  - DIZZINESS [None]
  - DYSPNOEA EXERTIONAL [None]
  - FALL [None]
  - FATIGUE [None]
  - METHAEMOGLOBINAEMIA [None]
  - SKIN DISCOLOURATION [None]
